FAERS Safety Report 25198204 (Version 1)
Quarter: 2025Q2

REPORT INFORMATION
  Report Type: Spontaneous
  Country: US (occurrence: None)
  Receive Date: 20250414
  Receipt Date: 20250414
  Transmission Date: 20250716
  Serious: Yes (Other)
  Sender: FDA-CTU
  Company Number: None

PATIENT
  Age: 62 Year
  Sex: Male
  Weight: 106.2 kg

DRUGS (11)
  1. ZEPBOUND [Suspect]
     Active Substance: TIRZEPATIDE
     Indication: Obesity
     Route: 058
     Dates: start: 20250407, end: 20250411
  2. DEVICE [Concomitant]
     Active Substance: DEVICE
  3. REPATHA [Concomitant]
     Active Substance: EVOLOCUMAB
  4. MAGNESIUM [Concomitant]
     Active Substance: MAGNESIUM
  5. Balance of Nature fruit/vegetable [Concomitant]
  6. Ubiquinol (COQ10) [Concomitant]
  7. ASTAXANTHIN [Concomitant]
     Active Substance: ASTAXANTHIN
  8. QUERCETIN [Concomitant]
     Active Substance: QUERCETIN
  9. VITAMIN D [Concomitant]
     Active Substance: VITAMIN D NOS
  10. beet root extract [Concomitant]
  11. Acetyl L Carnitine [Concomitant]

REACTIONS (8)
  - Fatigue [None]
  - Dizziness [None]
  - Tension headache [None]
  - Gait disturbance [None]
  - Abdominal distension [None]
  - Abdominal discomfort [None]
  - Dyspepsia [None]
  - Abdominal pain [None]

NARRATIVE: CASE EVENT DATE: 20250408
